FAERS Safety Report 21201869 (Version 4)
Quarter: 2022Q3

REPORT INFORMATION
  Report Type: Spontaneous
  Country: US (occurrence: US)
  Receive Date: 20220811
  Receipt Date: 20220831
  Transmission Date: 20221027
  Serious: No
  Sender: FDA-Public Use
  Company Number: US-PFIZER INC-202201051528

PATIENT
  Age: 68 Year
  Sex: Female

DRUGS (6)
  1. PAXLOVID [Suspect]
     Active Substance: NIRMATRELVIR\RITONAVIR
     Indication: COVID-19 treatment
     Dosage: ONE PILL FOR ONE DOSE AND ONE PILL FOR THE NEXT DOSE ON THE FIRST DAY
     Route: 048
     Dates: start: 20220804, end: 20220805
  2. PAXLOVID [Suspect]
     Active Substance: NIRMATRELVIR\RITONAVIR
     Dosage: [PF-07321332 300 MG]/[RITONAVIR 100 MG]; 2X/DAY
     Route: 048
     Dates: start: 20220806
  3. ALIGN [Concomitant]
     Active Substance: BIFIDOBACTERIUM LONGUM SUBSP. INFANTIS
     Dosage: UNK (SHE STARTED THESE ABOUT 3 OR 4 YEARS AGO)
  4. CALCIUM CITRATE\CHOLECALCIFEROL [Concomitant]
     Active Substance: CALCIUM CITRATE\CHOLECALCIFEROL
     Dosage: 1350 MG, 1X/DAY [VITAMIN D IS 25MG AND CALCIUM IS 650MG, TWO TABS IN THE MORNING]
  5. FOLIC ACID PLUS VITAMIN B12 [Concomitant]
     Dosage: 5800 UG (SHE STARTED THESE ABOUT 3 OR 4 YEARS AGO)
  6. VITAMINS NOS [Concomitant]
     Active Substance: VITAMINS
     Dosage: UNK (STARTED 3 OR 4 YRS AGO)

REACTIONS (2)
  - Feeling abnormal [Unknown]
  - Incorrect dose administered [Recovered/Resolved]

NARRATIVE: CASE EVENT DATE: 20220804
